FAERS Safety Report 7987222-8 (Version None)
Quarter: 2011Q4

REPORT INFORMATION
  Report Type: 
  Country: None (occurrence: None)
  Receive Date: 20111216
  Receipt Date: 20111208
  Transmission Date: 20120403
  Serious: Yes (Hospitalization)
  Sender: FDA-Public Use
  Company Number: PHHO2011NL019610

PATIENT
  Sex: Female
  Weight: 50 kg

DRUGS (4)
  1. COTRIM [Suspect]
     Indication: PROPHYLAXIS
     Dosage: 480 MG, BID
     Route: 048
     Dates: start: 20110907, end: 20111017
  2. VALACYCLOVIR HYDROCHLORIDE [Suspect]
     Indication: PROPHYLAXIS
     Dosage: 500 MG, TID
     Route: 048
     Dates: start: 20110907, end: 20111017
  3. SANDIMMUNE [Suspect]
     Indication: GRAFT VERSUS HOST DISEASE
     Dosage: 200 MG, QD
     Route: 048
     Dates: start: 20110904
  4. MYCOPHENOLIC ACID [Suspect]
     Indication: GRAFT VERSUS HOST DISEASE
     Dosage: 720 MG, QD
     Route: 048
     Dates: start: 20110907

REACTIONS (1)
  - GRAFT VERSUS HOST DISEASE [None]
